FAERS Safety Report 8569436-1 (Version None)
Quarter: 2012Q3

REPORT INFORMATION
  Report Type: 
  Country: None (occurrence: None)
  Receive Date: 20120803
  Receipt Date: 20120427
  Transmission Date: 20120928
  Serious: No
  Sender: FDA-Public Use
  Company Number: US-ABBOTT-12P-163-0930024-00

PATIENT
  Sex: Female
  Weight: 88.076 kg

DRUGS (1)
  1. NIASPAN [Suspect]
     Indication: ILL-DEFINED DISORDER
     Dosage: AT BEDTIME
     Dates: start: 20120101

REACTIONS (1)
  - FLUSHING [None]
